FAERS Safety Report 6296290-3 (Version None)
Quarter: 2009Q3

REPORT INFORMATION
  Report Type: 
  Country: None (occurrence: None)
  Receive Date: 20090804
  Receipt Date: 20090722
  Transmission Date: 20100115
  Serious: No
  Sender: FDA-Public Use
  Company Number: AU-ELI_LILLY_AND_COMPANY-AU200907004609

PATIENT
  Sex: Male

DRUGS (1)
  1. CIALIS [Suspect]
     Indication: ERECTILE DYSFUNCTION
     Dosage: 20 MG, UNKNOWN
     Route: 065
     Dates: start: 20090601, end: 20090701

REACTIONS (4)
  - OCULAR DISCOMFORT [None]
  - OCULAR HYPERAEMIA [None]
  - PHOTOPSIA [None]
  - VISUAL ACUITY REDUCED [None]
